FAERS Safety Report 25878500 (Version 1)
Quarter: 2025Q4

REPORT INFORMATION
  Report Type: Spontaneous
  Country: US (occurrence: None)
  Receive Date: 20251002
  Receipt Date: 20251002
  Transmission Date: 20260117
  Serious: Yes (Other)
  Sender: FDA-CTU
  Company Number: None

PATIENT
  Age: 85 Year
  Sex: Male
  Weight: 104.33 kg

DRUGS (1)
  1. LIDOCAINE [Suspect]
     Active Substance: LIDOCAINE
     Dosage: OTHER STRENGTH : 5% USP 35.44 GRAMS?

REACTIONS (3)
  - Product closure removal difficult [None]
  - Product closure issue [None]
  - Product closure issue [None]

NARRATIVE: CASE EVENT DATE: 20250821
